FAERS Safety Report 24957321 (Version 3)
Quarter: 2025Q2

REPORT INFORMATION
  Report Type: Spontaneous
  Country: US (occurrence: US)
  Receive Date: 20250211
  Receipt Date: 20250425
  Transmission Date: 20250716
  Serious: Yes (Death, Hospitalization, Other)
  Sender: SYNDAX
  Company Number: US-SYNDAX PHARMACEUTICALS, INC.-2025US000100

PATIENT
  Sex: Male
  Weight: 52.989 kg

DRUGS (2)
  1. REVUFORJ [Suspect]
     Active Substance: REVUMENIB CITRATE
     Indication: Acute myeloid leukaemia
     Dosage: 160 MILLIGRAM, BID
     Route: 048
     Dates: start: 20241017
  2. REVUFORJ [Suspect]
     Active Substance: REVUMENIB CITRATE
     Dosage: 110 MILLIGRAM, BID
     Route: 048
     Dates: start: 20241017

REACTIONS (3)
  - Death [Fatal]
  - Electrocardiogram QT interval abnormal [Unknown]
  - Infection [Unknown]
